FAERS Safety Report 9248593 (Version 3)
Quarter: 2013Q3

REPORT INFORMATION
  Report Type: Report from Study
  Country: US (occurrence: US)
  Receive Date: 20130423
  Receipt Date: 20130711
  Transmission Date: 20140515
  Serious: Yes (Hospitalization)
  Sender: FDA-Public Use
  Company Number: PHEH2013US008855

PATIENT
  Sex: Male

DRUGS (10)
  1. TOBI [Suspect]
     Dosage: 300 MG, BID
     Dates: start: 2004
  2. TOBI [Suspect]
     Dosage: 280 MG, ON AND OFF
  3. PULMOZYME [Concomitant]
     Dosage: UNK UKN, UNK
  4. XOPENEX [Concomitant]
     Dosage: UNK UKN, UNK
  5. CREON [Concomitant]
     Dosage: UNK UKN, UNK
  6. AQUADEKS [Concomitant]
     Dosage: UNK UKN, UNK
  7. SINGULAIR [Concomitant]
     Dosage: UNK UKN, UNK
  8. ALBUTEROL [Concomitant]
     Dosage: UNK UKN, UNK
  9. LORATADINE [Concomitant]
     Dosage: UNK UKN, UNK
  10. NASONEX [Concomitant]
     Dosage: DAILY

REACTIONS (4)
  - Feeling abnormal [Recovered/Resolved]
  - Oropharyngeal pain [Recovered/Resolved]
  - Headache [Recovered/Resolved]
  - Deafness [Recovering/Resolving]
